FAERS Safety Report 25390163 (Version 1)
Quarter: 2025Q2

REPORT INFORMATION
  Report Type: Spontaneous
  Country: US (occurrence: US)
  Receive Date: 20250603
  Receipt Date: 20250603
  Transmission Date: 20250716
  Serious: No
  Sender: BRISTOL-MYERS SQUIBB COMPANY
  Company Number: US-BRISTOL-MYERS SQUIBB COMPANY-2025-078713

PATIENT
  Age: 58 Year
  Sex: Female

DRUGS (2)
  1. ORENCIA [Suspect]
     Active Substance: ABATACEPT
     Indication: Rheumatoid factor
     Route: 058
     Dates: start: 202505
  2. ADALIMUMAB-AACF [Concomitant]
     Active Substance: ADALIMUMAB-AACF
     Indication: Product used for unknown indication

REACTIONS (2)
  - Pain [Unknown]
  - General physical health deterioration [Unknown]
